FAERS Safety Report 16564105 (Version 1)
Quarter: 2019Q3

REPORT INFORMATION
  Report Type: Spontaneous
  Country: SE (occurrence: SE)
  Receive Date: 20190712
  Receipt Date: 20190712
  Transmission Date: 20191004
  Serious: Yes (Death)
  Sender: FDA-Public Use
  Company Number: SE-TEVA-2019-SE-1075747

PATIENT
  Age: 65 Year
  Sex: Female

DRUGS (10)
  1. ENALAPRIL [Suspect]
     Active Substance: ENALAPRIL
     Route: 048
     Dates: start: 20091104
  2. ALVEDON [Concomitant]
     Active Substance: ACETAMINOPHEN
  3. METFORMIN [Interacting]
     Active Substance: METFORMIN HYDROCHLORIDE
     Route: 048
  4. OZEMPIC [Suspect]
     Active Substance: SEMAGLUTIDE
     Route: 058
     Dates: start: 20190516
  5. MULTAQ [Interacting]
     Active Substance: DRONEDARONE
     Route: 048
     Dates: start: 20110420
  6. WARAN [Concomitant]
     Active Substance: WARFARIN SODIUM
  7. SIMIDON [Concomitant]
     Active Substance: SIMVASTATIN
  8. BISOPROLOL [Concomitant]
     Active Substance: BISOPROLOL
  9. OZEMPIC [Suspect]
     Active Substance: SEMAGLUTIDE
     Route: 058
     Dates: start: 201904, end: 20190515
  10. FURIX [Concomitant]

REACTIONS (3)
  - Lactic acidosis [Fatal]
  - Renal failure [Fatal]
  - Drug interaction [Fatal]

NARRATIVE: CASE EVENT DATE: 201906
